FAERS Safety Report 21268653 (Version 1)
Quarter: 2022Q3

REPORT INFORMATION
  Report Type: Spontaneous
  Country: US (occurrence: US)
  Receive Date: 20220830
  Receipt Date: 20220830
  Transmission Date: 20221027
  Serious: Yes (Other)
  Sender: FDA-Public Use
  Company Number: US-BRISTOL-MYERS SQUIBB COMPANY-2022-094825

PATIENT
  Age: 82 Year

DRUGS (15)
  1. REVLIMID [Suspect]
     Active Substance: LENALIDOMIDE
     Indication: Plasma cell myeloma
     Route: 048
     Dates: start: 20210708
  2. DRONABINOL [Concomitant]
     Active Substance: DRONABINOL
  3. ALBUTEROL [Concomitant]
     Active Substance: ALBUTEROL
     Dosage: HFA INH(200 PUFFS) 8.5 GM
  4. MIRALAX [Concomitant]
     Active Substance: POLYETHYLENE GLYCOL 3350
     Dosage: 3350 NF POWDER 119 G
  5. ROSUVASTATIN [Concomitant]
     Active Substance: ROSUVASTATIN
  6. XARELTO [Concomitant]
     Active Substance: RIVAROXABAN
  7. ALLOPURINOL [Concomitant]
     Active Substance: ALLOPURINOL
  8. PANTOPRAZOLE [Concomitant]
     Active Substance: PANTOPRAZOLE
  9. ACETAMINOPHEN [Concomitant]
     Active Substance: ACETAMINOPHEN
  10. DEXAMETHASONE [Concomitant]
     Active Substance: DEXAMETHASONE
  11. AMLODIPINE BESYLATE [Concomitant]
     Active Substance: AMLODIPINE BESYLATE
  12. ACYCLOVIR [Concomitant]
     Active Substance: ACYCLOVIR
  13. COENZYME Q10 [Concomitant]
     Active Substance: DIETARY SUPPLEMENT\UBIDECARENONE
  14. DOCUSATE SODIUM [Concomitant]
     Active Substance: DOCUSATE SODIUM
  15. NITROGLYCERIN [Concomitant]
     Active Substance: NITROGLYCERIN

REACTIONS (4)
  - Arthralgia [Unknown]
  - Ageusia [Unknown]
  - Decreased appetite [Unknown]
  - Weight decreased [Unknown]

NARRATIVE: CASE EVENT DATE: 20220801
